FAERS Safety Report 4570343-X (Version None)
Quarter: 2005Q1

REPORT INFORMATION
  Report Type: 
  Country: None (occurrence: None)
  Receive Date: 20050204
  Receipt Date: 20050107
  Transmission Date: 20050727
  Serious: Yes (Hospitalization)
  Sender: FDA-Public Use
  Company Number: SE-ROCHE-391633

PATIENT
  Age: 33 Year
  Sex: Female

DRUGS (15)
  1. CELLCEPT [Suspect]
     Indication: DRUG USE FOR UNKNOWN INDICATION
     Route: 048
     Dates: start: 20040815
  2. CALCICHEW D3 [Concomitant]
  3. TRADOLAN [Concomitant]
  4. NEURONTIN [Concomitant]
  5. OMEPRAZOLE [Concomitant]
  6. SIMVASTATIN [Concomitant]
  7. WARAN [Concomitant]
  8. FUCIDINE CAP [Concomitant]
  9. IMPUGAN [Concomitant]
  10. ACETAMINOPHEN [Concomitant]
  11. PREDNISOLONE [Concomitant]
  12. SPIRONOLAKTON [Concomitant]
  13. PLENDIL [Concomitant]
  14. 1 CONCOMITANT DRUG [Concomitant]
  15. XERODENT [Concomitant]
     Dosage: FORM REPORTED AS LOZENGE.

REACTIONS (2)
  - HERPES ZOSTER [None]
  - PARESIS [None]
